FAERS Safety Report 14603986 (Version 1)
Quarter: 2018Q1

REPORT INFORMATION
  Report Type: Spontaneous
  Country: US (occurrence: US)
  Receive Date: 20180306
  Receipt Date: 20180306
  Transmission Date: 20180509
  Serious: No
  Sender: FDA-Public Use
  Company Number: US-LEXICON PHARMACEUTICALS, INC-18-1606-00198

PATIENT
  Sex: Male

DRUGS (2)
  1. TELOTRISTAT ETHYL [Suspect]
     Active Substance: TELOTRISTAT ETHYL
     Indication: CARCINOID SYNDROME
     Route: 048
     Dates: start: 20180123, end: 2018
  2. TELOTRISTAT ETHYL [Suspect]
     Active Substance: TELOTRISTAT ETHYL
     Dosage: TAKE 1 TABLET OF XERMELO AND GRADUALLY INCREASE DOSE
     Route: 048
     Dates: start: 2018

REACTIONS (3)
  - Constipation [Unknown]
  - Blood disorder [Unknown]
  - Acne [Recovered/Resolved]

NARRATIVE: CASE EVENT DATE: 2018
